FAERS Safety Report 4634192-6 (Version None)
Quarter: 2005Q2

REPORT INFORMATION
  Report Type: 
  Country: None (occurrence: None)
  Receive Date: 20050413
  Receipt Date: 20050405
  Transmission Date: 20051028
  Serious: Yes (Other)
  Sender: FDA-Public Use
  Company Number: US-BRISTOL-MYERS SQUIBB COMPANY-12923249

PATIENT
  Sex: Female

DRUGS (6)
  1. ESTRACE [Suspect]
     Indication: HORMONE REPLACEMENT THERAPY
     Dosage: TOOK HORMONE REPLACEMENT DRUGS FROM LATE 1980'S TO EARLY 1990'S AND THEN FROM 1999 TO 2001
     Dates: start: 19800101, end: 20010101
  2. PREMARIN [Suspect]
     Indication: HORMONE REPLACEMENT THERAPY
     Dosage: TOOK HORMONE REPLACEMENT DRUGS FROM LATE 1980'S TO EARLY 1990'S AND THEN FROM 1999 TO 2001
     Dates: start: 19800101, end: 20010101
  3. PREMPRO [Suspect]
     Indication: HORMONE REPLACEMENT THERAPY
     Dosage: TOOK HORMONE REPLACEMENT DRUGS FROM LATE 1980'S TO EARLY 1990'S AND THEN FROM 1999 TO 2001
     Dates: start: 19800101, end: 20010101
  4. FEMHRT [Suspect]
     Indication: HORMONE REPLACEMENT THERAPY
     Dosage: TOOK HORMONE REPLACEMENT DRUGS FROM LATE 1980'S TO EARLY 1990'S AND THEN FROM 1999 TO 2001
     Dates: start: 19800101, end: 20010101
  5. PROVERA [Suspect]
     Indication: HORMONE REPLACEMENT THERAPY
     Dosage: TOOK HORMONE REPLACEMENT DRUGS FROM LATE 1980'S TO EARLY 1990'S AND THEN FROM 1999 TO 2001
     Dates: start: 19800101, end: 20010101
  6. MEDROXYPROGESTERONE ACETATE [Suspect]
     Indication: HORMONE REPLACEMENT THERAPY
     Dosage: TOOK HORMONE REPLACEMENT DRUGS FROM LATE 1980'S TO EARLY 1990'S AND THEN FROM 1999 TO 2001
     Dates: start: 19800101, end: 20010101

REACTIONS (2)
  - BREAST CANCER [None]
  - CEREBROVASCULAR ACCIDENT [None]
